FAERS Safety Report 24569250 (Version 2)
Quarter: 2024Q4

REPORT INFORMATION
  Report Type: Report from Study
  Country: US (occurrence: US)
  Receive Date: 20241031
  Receipt Date: 20241212
  Transmission Date: 20250114
  Serious: Yes (Hospitalization, Other)
  Sender: ALEXION PHARMACEUTICALS
  Company Number: US-AstraZeneca-2021A797822

PATIENT

DRUGS (1)
  1. FASENRA [Suspect]
     Active Substance: BENRALIZUMAB
     Indication: Asthma
     Dosage: STRENGTH: MILLIGRAM PER MILLILITRE, 30 MILLIGRAM, Q8W

REACTIONS (3)
  - Thrombosis [Unknown]
  - Renal cancer [Unknown]
  - Bladder cancer [Unknown]
